FAERS Safety Report 4765203-5 (Version None)
Quarter: 2005Q3

REPORT INFORMATION
  Report Type: 
  Country: None (occurrence: None)
  Receive Date: 20050906
  Receipt Date: 20050824
  Transmission Date: 20060218
  Serious: Yes (Other)
  Sender: FDA-Public Use
  Company Number: 2005119611

PATIENT
  Age: 57 Year
  Sex: Male

DRUGS (2)
  1. CELEBREX [Suspect]
     Indication: PSORIATIC ARTHROPATHY
  2. ETANERCEPT (ETANERCEPT) [Suspect]
     Indication: PSORIATIC ARTHROPATHY
     Dosage: (50 MG, 1 IN 1 WK), SUBCUTANEOUS
     Route: 058
     Dates: start: 20050501

REACTIONS (3)
  - COLONIC POLYP [None]
  - FAECES DISCOLOURED [None]
  - OESOPHAGEAL CARCINOMA [None]
